FAERS Safety Report 9776243 (Version 1)
Quarter: 2013Q4

REPORT INFORMATION
  Report Type: Spontaneous
  Country: FR (occurrence: FR)
  Receive Date: 20131220
  Receipt Date: 20131220
  Transmission Date: 20140711
  Serious: Yes (Death, Hospitalization, Other)
  Sender: FDA-Public Use
  Company Number: FR-PFIZER INC-2013360252

PATIENT
  Age: 65 Year
  Sex: Female

DRUGS (11)
  1. XANAX [Suspect]
     Indication: ANXIETY
     Dosage: UNK
     Route: 048
     Dates: start: 20131115, end: 20131125
  2. TAVANIC [Suspect]
     Indication: INFECTION
     Dosage: UNK
     Route: 042
     Dates: start: 20131118, end: 20131125
  3. FORTUM [Suspect]
     Indication: INFECTION
     Dosage: UNK
     Route: 042
     Dates: start: 20131122, end: 20131125
  4. ZOVIRAX [Suspect]
     Indication: MENINGOENCEPHALITIS HERPETIC
     Dosage: UNK
     Dates: start: 20131122, end: 20131125
  5. TOPALGIC [Concomitant]
     Dosage: UNK
  6. PHOSPHONEUROS [Concomitant]
     Dosage: UNK
  7. AVLOCARDYL [Concomitant]
     Dosage: UNK
  8. CEFTRIAXONE KABI [Concomitant]
     Indication: BRONCHITIS
     Dosage: UNK
     Dates: start: 20131102
  9. BUSILVEX [Concomitant]
     Dosage: UNK
     Dates: start: 20131114, end: 20131117
  10. ENDOXAN [Concomitant]
     Dosage: 50 MG, UNK
     Dates: start: 20131119, end: 20131120
  11. UROMITEXAN [Concomitant]
     Dosage: UNK

REACTIONS (9)
  - Stevens-Johnson syndrome [Fatal]
  - Sepsis [Fatal]
  - Cardio-respiratory arrest [Fatal]
  - B-cell lymphoma [Unknown]
  - Haematuria [Unknown]
  - Febrile bone marrow aplasia [Unknown]
  - Atrial fibrillation [Unknown]
  - Thrombocytopenia [Unknown]
  - Meningoencephalitis herpetic [Unknown]
